FAERS Safety Report 8004407-5 (Version None)
Quarter: 2011Q4

REPORT INFORMATION
  Report Type: 
  Country: None (occurrence: None)
  Receive Date: 20111223
  Receipt Date: 20111209
  Transmission Date: 20120403
  Serious: Yes (Death, Hospitalization, Other)
  Sender: FDA-Public Use
  Company Number: AU-RANBAXY-2007RR-07041

PATIENT

DRUGS (2)
  1. ACETAMINOPHEN [Suspect]
     Indication: ABDOMINAL PAIN
     Dosage: 1 G, QID
     Route: 065
  2. ACETYLCYSTEINE [Concomitant]
     Indication: PRODUCT USED FOR UNKNOWN INDICATION
     Route: 042

REACTIONS (5)
  - ALTERED STATE OF CONSCIOUSNESS [None]
  - HAEMATURIA [None]
  - METABOLIC ACIDOSIS [None]
  - ACUTE HEPATIC FAILURE [None]
  - RENAL FAILURE [None]
